FAERS Safety Report 9034324 (Version 3)
Quarter: 2014Q1

REPORT INFORMATION
  Report Type: Spontaneous
  Country: US (occurrence: None)
  Receive Date: 20130114
  Receipt Date: 20140116
  Transmission Date: 20141002
  Serious: Yes (Hospitalization, Other)
  Sender: FDA-Public Use
  Company Number: ADR-2013-00029

PATIENT
  Sex: Female

DRUGS (4)
  1. BACLOFEN [Suspect]
     Indication: PAIN
  2. BUPIVACAINE? [Concomitant]
  3. DILAUDID (HYDROMORPHONE) [Concomitant]
  4. INTRATHECAL [Concomitant]

REACTIONS (13)
  - Overdose [None]
  - Lethargy [None]
  - Loss of consciousness [None]
  - Breast cancer [None]
  - Alopecia [None]
  - Thyroid disorder [None]
  - Dental caries [None]
  - Impaired gastric emptying [None]
  - Vomiting [None]
  - Pain [None]
  - Hormone level abnormal [None]
  - Unevaluable event [None]
  - Dyspnoea [None]
